FAERS Safety Report 14474500 (Version 3)
Quarter: 2018Q4

REPORT INFORMATION
  Report Type: Report from Study
  Country: None (occurrence: US)
  Receive Date: 20180201
  Receipt Date: 20181109
  Transmission Date: 20190204
  Serious: Yes (Hospitalization, Other)
  Sender: FDA-Public Use
  Company Number: US-ABBVIE-18S-163-2238994-00

PATIENT
  Age: 69 Year
  Sex: Male

DRUGS (1)
  1. CREON [Suspect]
     Active Substance: PANCRELIPASE AMYLASE\PANCRELIPASE LIPASE\PANCRELIPASE PROTEASE
     Indication: PANCREATITIS CHRONIC
     Dosage: FOUR TIMES A DAY AS NEEDED
     Route: 048
     Dates: start: 20170901

REACTIONS (6)
  - Influenza [Unknown]
  - Pneumonia [Unknown]
  - Abdominal hernia [Unknown]
  - Pancreatectomy [Unknown]
  - Splenectomy [Unknown]
  - Influenza [Unknown]

NARRATIVE: CASE EVENT DATE: 20171109
